FAERS Safety Report 24987551 (Version 1)
Quarter: 2025Q1

REPORT INFORMATION
  Report Type: Spontaneous
  Country: US (occurrence: US)
  Receive Date: 20250219
  Receipt Date: 20250219
  Transmission Date: 20250409
  Serious: Yes (Other)
  Sender: VERTEX
  Company Number: US-VERTEX PHARMACEUTICALS-2023-001477

PATIENT
  Age: 14 Month
  Sex: Male

DRUGS (3)
  1. TRIKAFTA [Suspect]
     Active Substance: ELEXACAFTOR\IVACAFTOR\TEZACAFTOR
     Indication: Cystic fibrosis
     Dosage: HALF TABLET (ELEXACAFTOR 50 MG/TEZACAFTOR 25 MG/IVACAFTOR 37.5 MG) IN AM; NO PM DOSE
     Route: 048
  2. TRIKAFTA [Suspect]
     Active Substance: ELEXACAFTOR\IVACAFTOR\TEZACAFTOR
     Route: 048
  3. TRIKAFTA [Suspect]
     Active Substance: ELEXACAFTOR\IVACAFTOR\TEZACAFTOR
     Dosage: ONE TABLET (ELEXACAFTOR 50 MG/TEZACAFTOR 25 MG/IVACAFTOR 37.5 MG) DAILY; NO PM DOSE
     Route: 048

REACTIONS (2)
  - Gastrointestinal surgery [Unknown]
  - Off label use [Unknown]
